FAERS Safety Report 18642449 (Version 2)
Quarter: 2021Q1

REPORT INFORMATION
  Report Type: Spontaneous
  Country: JP (occurrence: JP)
  Receive Date: 20201221
  Receipt Date: 20210107
  Transmission Date: 20210419
  Serious: Yes (Death, Hospitalization)
  Sender: FDA-Public Use
  Company Number: JP-TEVA-2020-JP-1861029

PATIENT
  Sex: Female

DRUGS (7)
  1. METHYLPREDNISOLONE. [Suspect]
     Active Substance: METHYLPREDNISOLONE
     Indication: ACUTE GRAFT VERSUS HOST DISEASE IN SKIN
     Route: 065
  2. METHOTREXATE. [Suspect]
     Active Substance: METHOTREXATE
     Indication: PROPHYLAXIS AGAINST GRAFT VERSUS HOST DISEASE
     Dosage: 15MG ON DAY +1
     Route: 065
  3. PREDNISOLONE. [Suspect]
     Active Substance: PREDNISOLONE
     Indication: IMMUNOSUPPRESSANT DRUG THERAPY
     Dosage: AT DOSES 0.25?0.5 MG/KG
     Route: 065
  4. MYCOPHENOLATE MOFETIL. [Suspect]
     Active Substance: MYCOPHENOLATE MOFETIL
     Indication: IMMUNOSUPPRESSANT DRUG THERAPY
     Route: 065
  5. METHOTREXATE. [Suspect]
     Active Substance: METHOTREXATE
     Indication: PROPHYLAXIS AGAINST GRAFT VERSUS HOST DISEASE
     Dosage: ON DAYS +3, +6, AND +11
     Route: 065
  6. TACROLIMUS. [Suspect]
     Active Substance: TACROLIMUS
     Indication: PROPHYLAXIS AGAINST GRAFT VERSUS HOST DISEASE
     Dosage: .02 MG/KG DAILY; FROM DAY ?1
     Route: 065
  7. IMMUNOGLOBULIN [Concomitant]
     Indication: IMMUNE RECONSTITUTION INFLAMMATORY SYNDROME
     Route: 065

REACTIONS (10)
  - Osteonecrosis [Recovering/Resolving]
  - Thrombotic microangiopathy [Recovering/Resolving]
  - Condition aggravated [Recovering/Resolving]
  - Graft versus host disease in lung [Fatal]
  - Chronic graft versus host disease oral [Recovering/Resolving]
  - Arthritis bacterial [Recovering/Resolving]
  - Condition aggravated [Fatal]
  - Listeriosis [Recovering/Resolving]
  - Mycobacterium kansasii infection [Recovered/Resolved]
  - Chronic graft versus host disease in skin [Recovering/Resolving]
